FAERS Safety Report 5441290-6 (Version None)
Quarter: 2007Q3

REPORT INFORMATION
  Report Type: 
  Country: None (occurrence: None)
  Receive Date: 20070903
  Receipt Date: 20070828
  Transmission Date: 20080115
  Serious: Yes (Other)
  Sender: FDA-Public Use
  Company Number: GB-MERCK-0708GBR00123

PATIENT
  Age: 81 Year
  Sex: Male
  Weight: 72 kg

DRUGS (8)
  1. ZOCOR [Suspect]
     Indication: HYPERLIPIDAEMIA
     Route: 048
     Dates: start: 20070530, end: 20070719
  2. RISEDRONATE SODIUM [Concomitant]
     Route: 048
  3. ASPIRIN [Concomitant]
     Route: 048
     Dates: start: 20040901
  4. CALCIUM CARBONATE AND CHOLECALCIFEROL [Concomitant]
     Route: 048
     Dates: start: 20030101
  5. BISOPROLOL FUMARATE [Concomitant]
     Route: 048
     Dates: start: 20040901
  6. FUROSEMIDE [Concomitant]
     Indication: ATRIAL FIBRILLATION
     Route: 048
     Dates: start: 20040901
  7. LANSOPRAZOLE [Concomitant]
     Indication: DYSPEPSIA
     Route: 048
     Dates: start: 20031001
  8. RAMIPRIL [Concomitant]
     Route: 048
     Dates: start: 20040901

REACTIONS (4)
  - BLISTER [None]
  - DERMATITIS [None]
  - PRURITUS [None]
  - SWELLING [None]
